FAERS Safety Report 4335444-X (Version None)
Quarter: 2004Q2

REPORT INFORMATION
  Report Type: 
  Country: None (occurrence: None)
  Receive Date: 20040406
  Receipt Date: 20040219
  Transmission Date: 20050107
  Serious: No
  Sender: FDA-Public Use
  Company Number: HQWYE283624FEB04

PATIENT
  Age: 62 Year
  Sex: Male

DRUGS (2)
  1. PROTONIX [Suspect]
     Dosage: 80 MG 1X PER 1 DAY, INFUSION
     Dates: start: 20040218
  2. POTASSIUM CHLORIDE W/ SODIUM CHLORIDE (POTASSIUM CHLORIDE/ SODIUM CHLO [Concomitant]

REACTIONS (1)
  - INFUSION SITE REACTION [None]
